FAERS Safety Report 24433047 (Version 2)
Quarter: 2024Q4

REPORT INFORMATION
  Report Type: Spontaneous
  Country: IT (occurrence: IT)
  Receive Date: 20241014
  Receipt Date: 20241214
  Transmission Date: 20250114
  Serious: Yes (Other)
  Sender: CELLTRION
  Company Number: IT-AMGEN-ITASP2024071135

PATIENT

DRUGS (3)
  1. ADALIMUMAB [Suspect]
     Active Substance: ADALIMUMAB
     Indication: SAPHO syndrome
     Dosage: 40 MILLIGRAM, Q2WK (ADDITIONAL INFORMATION ON DRUG (FREE TEXT): DOSAGE1: UNIT=NOT AVAILABLE)
     Route: 065
     Dates: start: 202205, end: 202208
  2. METHOTREXATE [Concomitant]
     Active Substance: METHOTREXATE
     Indication: SAPHO syndrome
     Dosage: 15 MG PER WEEK
     Route: 058
  3. PREDNISONE [Concomitant]
     Active Substance: PREDNISONE
     Indication: SAPHO syndrome
     Dosage: 7.5 MG FOR 2 WEEKS

REACTIONS (7)
  - SAPHO syndrome [Recovered/Resolved]
  - Arthritis [Unknown]
  - Guttate psoriasis [Unknown]
  - Pustule [Unknown]
  - Off label use [Unknown]
  - Drug effective for unapproved indication [Unknown]
  - Loss of therapeutic response [Unknown]

NARRATIVE: CASE EVENT DATE: 20220101
